FAERS Safety Report 16393350 (Version 8)
Quarter: 2019Q4

REPORT INFORMATION
  Report Type: Report from Study
  Country: KR (occurrence: KR)
  Receive Date: 20190605
  Receipt Date: 20191030
  Transmission Date: 20200122
  Serious: Yes (Life-Threatening, Hospitalization)
  Sender: FDA-Public Use
  Company Number: KR-TAKEDA-2019TUS031220

PATIENT
  Age: 60 Year
  Sex: Female
  Weight: 62 kg

DRUGS (20)
  1. BRIGATINIB [Suspect]
     Active Substance: BRIGATINIB
     Indication: NON-SMALL CELL LUNG CANCER
     Dosage: 90 MILLIGRAM, QD
     Route: 048
     Dates: start: 20190513, end: 20190515
  2. CURAN [Concomitant]
     Active Substance: RANITIDINE HYDROCHLORIDE
     Indication: PROPHYLAXIS
     Dosage: 150 MILLIGRAM, BID
     Route: 048
     Dates: start: 20190506, end: 20190604
  3. TIROPA [Concomitant]
     Active Substance: TIROPRAMIDE
     Indication: ABDOMINAL PAIN
     Dosage: 50 MILLIGRAM
     Route: 042
     Dates: start: 20190506, end: 20190506
  4. ULCERMIN                           /00434701/ [Concomitant]
     Indication: DYSPEPSIA
     Dosage: 15 MILLIGRAM, QD
     Route: 048
     Dates: start: 20190507, end: 20190604
  5. NAXEN-F [Concomitant]
     Indication: INFECTION PROPHYLAXIS
     Dosage: 500 MILLIGRAM, QD
     Route: 048
     Dates: start: 20190509, end: 20190516
  6. TRANSAMIN [Concomitant]
     Active Substance: TRANEXAMIC ACID
     Indication: HAEMOPTYSIS
     Dosage: 250 MILLIGRAM, TID
     Route: 048
     Dates: start: 20190429, end: 20190514
  7. TIROMED [Concomitant]
     Indication: ABDOMINAL PAIN
     Dosage: 100 MILLIGRAM, BID
     Route: 048
     Dates: start: 20190502, end: 20190504
  8. MORPHINE SULFATE. [Concomitant]
     Active Substance: MORPHINE SULFATE
     Indication: ABDOMINAL PAIN
     Dosage: 5 MILLIGRAM
     Route: 042
     Dates: start: 20190501, end: 20190501
  9. GOMCEPHIN [Concomitant]
     Indication: INFECTION PROPHYLAXIS
     Dosage: 2 GRAM, QD
     Route: 042
     Dates: start: 20190506, end: 20190512
  10. TROLAC [Concomitant]
     Indication: ABDOMINAL PAIN
     Dosage: 30 MILLIGRAM, QD
     Route: 042
     Dates: start: 20190504, end: 20190504
  11. PHAZYME                            /00164001/ [Concomitant]
     Indication: DYSPEPSIA
     Dosage: 95 MILLIGRAM, TID
     Route: 048
     Dates: start: 20190506, end: 20190604
  12. CODEINE PHOSPHATE [Concomitant]
     Active Substance: CODEINE PHOSPHATE
     Dosage: 20 MILLIGRAM, TID
     Route: 048
     Dates: start: 20190507, end: 20190604
  13. PANTOLOC                           /01263204/ [Concomitant]
     Active Substance: PANTOPRAZOLE SODIUM
     Indication: DYSPEPSIA
     Dosage: 40 MILLIGRAM, QD
     Route: 048
     Dates: start: 20190502, end: 20190505
  14. LEVOPRIDE [Concomitant]
     Indication: ABDOMINAL PAIN
     Dosage: 25 MILLIGRAM, TID
     Route: 048
     Dates: start: 20190502, end: 20190505
  15. DUROGESIC [Concomitant]
     Active Substance: FENTANYL
     Indication: PAIN
     Dosage: 12 MICROGRAM
     Route: 061
     Dates: start: 20190509
  16. CURAN [Concomitant]
     Active Substance: RANITIDINE HYDROCHLORIDE
     Indication: DYSPEPSIA
  17. DENOGAN [Concomitant]
     Active Substance: PROPACETAMOL HYDROCHLORIDE
     Indication: ABDOMINAL PAIN
     Dosage: 1 GRAM, Q12H
     Route: 042
     Dates: start: 20190506, end: 20190509
  18. SYNTHROID [Concomitant]
     Active Substance: LEVOTHYROXINE SODIUM
     Indication: THYROIDECTOMY
     Dosage: 0.1 MILLIGRAM, QD
     Route: 048
     Dates: start: 20190506
  19. CODEINE PHOSPHATE [Concomitant]
     Active Substance: CODEINE PHOSPHATE
     Indication: COUGH
     Dosage: 20 MILLIGRAM, TID
     Route: 048
     Dates: start: 20190429, end: 20190505
  20. DENOGAN [Concomitant]
     Active Substance: PROPACETAMOL HYDROCHLORIDE
     Dosage: 1 GRAM, TID
     Route: 042
     Dates: start: 20190516, end: 20190616

REACTIONS (1)
  - Pulmonary oedema [Recovered/Resolved]

NARRATIVE: CASE EVENT DATE: 20190514
